FAERS Safety Report 23865133 (Version 2)
Quarter: 2024Q2

REPORT INFORMATION
  Report Type: Report from Study
  Country: US (occurrence: US)
  Receive Date: 20240517
  Receipt Date: 20240518
  Transmission Date: 20240716
  Serious: Yes (Death)
  Sender: FDA-Public Use
  Company Number: US-ABBVIE-5763226

PATIENT
  Sex: Female
  Weight: 46 kg

DRUGS (4)
  1. RINVOQ [Suspect]
     Active Substance: UPADACITINIB
     Indication: Rheumatoid arthritis
     Dosage: 15 MILLIGRAM
     Route: 048
     Dates: start: 20210503, end: 20240426
  2. PRIMIDONE [Concomitant]
     Active Substance: PRIMIDONE
     Indication: Parkinson^s disease
  3. MORPHINE [Concomitant]
     Active Substance: MORPHINE
     Indication: Pain
  4. TYLENOL EXTRA STRENGTH [Concomitant]
     Active Substance: ACETAMINOPHEN
     Indication: Pain

REACTIONS (1)
  - Parkinson^s disease [Fatal]
